FAERS Safety Report 19672728 (Version 1)
Quarter: 2021Q3

REPORT INFORMATION
  Report Type: Spontaneous
  Country: US (occurrence: US)
  Receive Date: 20210809
  Receipt Date: 20210809
  Transmission Date: 20211014
  Serious: No
  Sender: FDA-Public Use
  Company Number: US-TEVA-2021-US-1931970

PATIENT
  Age: 20 Year
  Sex: Female

DRUGS (2)
  1. AJOVY [Suspect]
     Active Substance: FREMANEZUMAB-VFRM
     Indication: MIGRAINE
     Dosage: 225 MG / 1.5 ML
     Route: 065
     Dates: start: 2021
  2. AJOVY [Suspect]
     Active Substance: FREMANEZUMAB-VFRM
     Indication: CLUSTER HEADACHE

REACTIONS (6)
  - Nervousness [Not Recovered/Not Resolved]
  - Incorrect dose administered [Unknown]
  - Accidental exposure to product [Unknown]
  - Device issue [Unknown]
  - Product storage error [Unknown]
  - Product communication issue [Unknown]

NARRATIVE: CASE EVENT DATE: 2021
